FAERS Safety Report 9581033 (Version 3)
Quarter: 2013Q4

REPORT INFORMATION
  Report Type: Report from Study
  Country: US (occurrence: US)
  Receive Date: 20131002
  Receipt Date: 20131010
  Transmission Date: 20140711
  Serious: Yes (Hospitalization, Other)
  Sender: FDA-Public Use
  Company Number: US-ABBVIE-13P-163-1139732-00

PATIENT
  Age: 29 Year
  Sex: Female

DRUGS (6)
  1. LUPRON DEPOT [Suspect]
     Indication: ENDOMETRIOSIS
     Route: 058
     Dates: start: 20130819
  2. HIGH BLOOD PRESSURE PILL WITH WATER PILL [Concomitant]
     Indication: HYPERTENSION
  3. VIIBRYD [Concomitant]
     Indication: PRODUCT USED FOR UNKNOWN INDICATION
  4. KLONOPIN [Concomitant]
     Indication: PRODUCT USED FOR UNKNOWN INDICATION
  5. METFORMIN [Concomitant]
     Indication: PRODUCT USED FOR UNKNOWN INDICATION
  6. NORETHINDRONE ACETATE [Concomitant]
     Indication: PRODUCT USED FOR UNKNOWN INDICATION

REACTIONS (17)
  - Abdominal pain lower [Recovering/Resolving]
  - Pelvic pain [Recovering/Resolving]
  - Pyrexia [Recovered/Resolved]
  - Mobility decreased [Not Recovered/Not Resolved]
  - Muscle spasms [Not Recovered/Not Resolved]
  - Endometriosis [Recovering/Resolving]
  - Abdominal discomfort [Recovering/Resolving]
  - Menorrhagia [Recovering/Resolving]
  - Dysmenorrhoea [Recovering/Resolving]
  - Ovarian cyst [Recovered/Resolved]
  - Fallopian tube cyst [Recovered/Resolved]
  - Incision site pain [Recovering/Resolving]
  - Pneumonia viral [Recovering/Resolving]
  - Pneumothorax [Unknown]
  - Heart rate increased [Recovered/Resolved]
  - Adnexal torsion [Recovering/Resolving]
  - Pyrexia [Recovering/Resolving]
